FAERS Safety Report 9690977 (Version 1)
Quarter: 2013Q4

REPORT INFORMATION
  Report Type: Report from Study
  Country: US (occurrence: US)
  Receive Date: 20131115
  Receipt Date: 20131115
  Transmission Date: 20140711
  Serious: Yes (Life-Threatening, Hospitalization)
  Sender: FDA-Public Use
  Company Number: US-TEVA-444612USA

PATIENT
  Age: 11 Month
  Sex: Male
  Weight: 10 kg

DRUGS (15)
  1. LESTAURTINIB [Suspect]
     Dates: start: 20130726, end: 20131108
  2. CYCLOPHOSPHAMIDE [Suspect]
     Dates: start: 20130726, end: 20131102
  3. CYTARABINE [Suspect]
     Dates: start: 20130726, end: 20131028
  4. DAUNORUBICIN [Suspect]
     Dates: start: 20130726, end: 20131030
  5. DEXAMETHASONE [Suspect]
     Dates: start: 20130726, end: 20131104
  6. ETOPOSIDE [Suspect]
  7. HYDROCORTISONE [Suspect]
     Dates: start: 20130726, end: 20131028
  8. L-ASPARAGINASE [Suspect]
  9. FOLINIC ACID [Suspect]
  10. METHOTREXATE [Suspect]
     Dates: start: 20130726, end: 20131028
  11. PEG-L-ASPARAGINASE [Suspect]
     Dates: start: 20130726, end: 20131101
  12. PREDNISONE [Suspect]
  13. VINCRISTINE [Suspect]
     Dates: start: 20130726, end: 20131104
  14. BACTRIM [Suspect]
  15. MICAFUNGIN [Suspect]

REACTIONS (2)
  - Staphylococcal infection [Recovering/Resolving]
  - Febrile neutropenia [Recovering/Resolving]
